FAERS Safety Report 12791428 (Version 2)
Quarter: 2019Q1

REPORT INFORMATION
  Report Type: Report from Study
  Country: CO (occurrence: CO)
  Receive Date: 20160929
  Receipt Date: 20190125
  Transmission Date: 20190417
  Serious: Yes (Other)
  Sender: FDA-Public Use
  Company Number: PHHY2015CO136152

PATIENT
  Age: 69 Year
  Sex: Male
  Weight: 63 kg

DRUGS (2)
  1. TASIGNA [Suspect]
     Active Substance: NILOTINIB
     Indication: CHRONIC MYELOID LEUKAEMIA
     Dosage: 150 MG, Q12H
     Route: 048
     Dates: start: 20110115
  2. TASIGNA [Suspect]
     Active Substance: NILOTINIB
     Dosage: 2 DF, Q12H (150 MG CAPSULE)
     Route: 048
     Dates: start: 20120314

REACTIONS (7)
  - Eye haemorrhage [Not Recovered/Not Resolved]
  - Investigation abnormal [Unknown]
  - Fall [Unknown]
  - Cough [Unknown]
  - Influenza [Unknown]
  - Asthma [Unknown]
  - Hypersensitivity [Unknown]

NARRATIVE: CASE EVENT DATE: 20160913
